FAERS Safety Report 19882565 (Version 2)
Quarter: 2021Q4

REPORT INFORMATION
  Report Type: Report from Study
  Country: US (occurrence: US)
  Receive Date: 20210924
  Receipt Date: 20211020
  Transmission Date: 20220303
  Serious: No
  Sender: FDA-Public Use
  Company Number: US-BOEHRINGERINGELHEIM-2021-BI-127487

PATIENT
  Age: 76 Year
  Sex: Male

DRUGS (4)
  1. OFEV [Suspect]
     Active Substance: NINTEDANIB
     Indication: Idiopathic pulmonary fibrosis
     Dosage: 150 MG BID
     Route: 048
     Dates: start: 20210903
  2. OFEV [Suspect]
     Active Substance: NINTEDANIB
     Indication: Interstitial lung disease
     Route: 048
  3. OFEV [Suspect]
     Active Substance: NINTEDANIB
     Indication: Pulmonary fibrosis
     Route: 048
     Dates: start: 20210908
  4. OFEV [Suspect]
     Active Substance: NINTEDANIB
     Dosage: 100MG BID
     Route: 048

REACTIONS (16)
  - Diarrhoea [Unknown]
  - Flatulence [Unknown]
  - Abdominal pain [Recovering/Resolving]
  - Diarrhoea [Recovering/Resolving]
  - Abdominal discomfort [Not Recovered/Not Resolved]
  - Gastrooesophageal reflux disease [Not Recovered/Not Resolved]
  - Decreased appetite [Not Recovered/Not Resolved]
  - Weight decreased [Not Recovered/Not Resolved]
  - Taste disorder [Not Recovered/Not Resolved]
  - Fatigue [Unknown]
  - Feeling abnormal [Not Recovered/Not Resolved]
  - Flatulence [Not Recovered/Not Resolved]
  - Gastrointestinal disorder [Not Recovered/Not Resolved]
  - Abdominal pain upper [Not Recovered/Not Resolved]
  - Abdominal discomfort [Not Recovered/Not Resolved]
  - Oxygen therapy [Not Recovered/Not Resolved]

NARRATIVE: CASE EVENT DATE: 20210801
